FAERS Safety Report 25451426 (Version 1)
Quarter: 2025Q2

REPORT INFORMATION
  Report Type: Spontaneous
  Country: US (occurrence: None)
  Receive Date: 20250617
  Receipt Date: 20250617
  Transmission Date: 20250717
  Serious: No
  Sender: FDA-CTU
  Company Number: None

PATIENT
  Age: 72 Year
  Sex: Male

DRUGS (1)
  1. LENVIMA [Suspect]
     Active Substance: LENVATINIB
     Dosage: 14 MG DAILY ORAL
     Route: 048

REACTIONS (4)
  - Diarrhoea [None]
  - Fatigue [None]
  - Ageusia [None]
  - Pain [None]
